FAERS Safety Report 6247407-8 (Version None)
Quarter: 2009Q2

REPORT INFORMATION
  Report Type: 
  Country: None (occurrence: None)
  Receive Date: 20090624
  Receipt Date: 20090624
  Transmission Date: 20091009
  Serious: Yes (Hospitalization)
  Sender: FDA-Public Use
  Company Number: None

PATIENT
  Age: 40 Year
  Sex: Male
  Weight: 54 kg

DRUGS (8)
  1. VINCRISTINE [Suspect]
     Indication: HODGKIN'S DISEASE
     Dosage: 2MG IV DAYS 1 + 8
     Route: 042
     Dates: start: 20090429
  2. VINCRISTINE [Suspect]
     Indication: HODGKIN'S DISEASE
     Dosage: 2MG IV DAYS 1 + 8
     Route: 042
     Dates: start: 20090506
  3. POSACONAZOLE [Concomitant]
  4. AUGMENTIN [Concomitant]
  5. BACTRIM [Concomitant]
  6. MIRTAZAPINE [Concomitant]
  7. DOCUSATE [Concomitant]
  8. PREDNISONE [Concomitant]

REACTIONS (2)
  - CONSTIPATION [None]
  - ILEUS [None]
